FAERS Safety Report 8988675 (Version 1)
Quarter: 2012Q4

REPORT INFORMATION
  Report Type: Spontaneous
  Country: US (occurrence: None)
  Receive Date: 20121218
  Receipt Date: 20121218
  Transmission Date: 20130627
  Serious: Yes (Other)
  Sender: FDA-Public Use
  Company Number: DSA_61382_2012

PATIENT
  Age: 55 Year
  Sex: Female

DRUGS (1)
  1. XENAZINE 12.5 MG (NOT SPECIFIED) [Suspect]
     Indication: HUNTINGTON^S DISEASE
     Route: 048
     Dates: start: 20121012, end: 20121014

REACTIONS (3)
  - Swelling face [None]
  - Swollen tongue [None]
  - Oedema peripheral [None]
